FAERS Safety Report 10185751 (Version 1)
Quarter: 2014Q2

REPORT INFORMATION
  Report Type: Spontaneous
  Country: US (occurrence: US)
  Receive Date: 20140521
  Receipt Date: 20140521
  Transmission Date: 20141212
  Serious: Yes (Hospitalization)
  Sender: FDA-Public Use
  Company Number: US-BAYER-2014-075392

PATIENT
  Age: 37 Year
  Sex: Female

DRUGS (6)
  1. YAZ [Suspect]
  2. LIDOCAINE [Concomitant]
     Dosage: 1 %, UNK
     Dates: start: 20080702
  3. ISOVUE MULTIPK-300 [Concomitant]
     Dosage: UNK
     Dates: start: 20080702
  4. DEPO-MEDROL [Concomitant]
     Dosage: UNK
     Dates: start: 20080702
  5. VALTREX [Concomitant]
  6. ACETAMINOPHEN W/OXYCODONE [Concomitant]

REACTIONS (1)
  - Pulmonary embolism [None]
